FAERS Safety Report 24002854 (Version 1)
Quarter: 2024Q2

REPORT INFORMATION
  Report Type: Spontaneous
  Country: US (occurrence: US)
  Receive Date: 20240624
  Receipt Date: 20240624
  Transmission Date: 20240716
  Serious: Yes (Other)
  Sender: FDA-Public Use
  Company Number: US-NOVOPROD-1240635

PATIENT
  Age: 92 Year
  Sex: Female

DRUGS (2)
  1. NOVOLOG [Suspect]
     Active Substance: INSULIN ASPART
     Indication: Type 2 diabetes mellitus
     Dosage: 12 IU
     Route: 058
  2. NOVOLOG [Suspect]
     Active Substance: INSULIN ASPART
     Dosage: 10 IU
     Route: 058
     Dates: start: 202403

REACTIONS (9)
  - Pancreatitis [Unknown]
  - Cystitis [Unknown]
  - Aphonia [Unknown]
  - Vertigo [Unknown]
  - Headache [Unknown]
  - Fatigue [Unknown]
  - Constipation [Unknown]
  - Injection site induration [Unknown]
  - Blood glucose fluctuation [Unknown]

NARRATIVE: CASE EVENT DATE: 20240501
